FAERS Safety Report 14634079 (Version 5)
Quarter: 2018Q2

REPORT INFORMATION
  Report Type: Spontaneous
  Country: GB (occurrence: DE)
  Receive Date: 20180314
  Receipt Date: 20180611
  Transmission Date: 20180711
  Serious: Yes (Hospitalization, Other)
  Sender: FDA-Public Use
  Company Number: DE-FRESENIUS KABI-FK201802595

PATIENT
  Age: 62 Year
  Sex: Male
  Weight: 70 kg

DRUGS (23)
  1. IRINOTECAN (MANUFACTURER UNKNOWN) [Suspect]
     Active Substance: IRINOTECAN
     Indication: COLORECTAL CANCER METASTATIC
     Dosage: UNKNOWN
     Route: 042
     Dates: start: 20161107
  2. AVASTIN [Suspect]
     Active Substance: BEVACIZUMAB
     Route: 042
     Dates: start: 20160404, end: 20161024
  3. 5-FLUOROURACIL [Suspect]
     Active Substance: FLUOROURACIL
     Dosage: 1 DF, Q2W (4344-5792 MG)
     Route: 041
     Dates: start: 20151228, end: 20161107
  4. PEGFILGRASTIM [Suspect]
     Active Substance: PEGFILGRASTIM
     Route: 042
     Dates: start: 20151228
  5. OXALIPLATIN (MANUFACTURER UNKNOWN) [Suspect]
     Active Substance: OXALIPLATIN
     Dosage: UNKNOWN
     Route: 042
     Dates: start: 20160815
  6. OXALIPLATIN (MANUFACTURER UNKNOWN) [Suspect]
     Active Substance: OXALIPLATIN
     Dosage: UNKNOWN
     Route: 042
     Dates: start: 20151228
  7. IRINOTECAN (MANUFACTURER UNKNOWN) [Suspect]
     Active Substance: IRINOTECAN
     Dosage: UNKNOWN
     Route: 042
     Dates: start: 20151228, end: 20161107
  8. AVASTIN [Suspect]
     Active Substance: BEVACIZUMAB
     Indication: COLORECTAL CANCER METASTATIC
     Route: 042
     Dates: start: 20151228, end: 20161024
  9. PEGFILGRASTIM [Suspect]
     Active Substance: PEGFILGRASTIM
     Indication: NEUTROPENIA
     Route: 042
     Dates: start: 20151228
  10. 5-FLUOROURACIL [Suspect]
     Active Substance: FLUOROURACIL
     Indication: COLORECTAL CANCER
     Dosage: 724 MG, Q2W
     Route: 040
     Dates: start: 20160829, end: 20161107
  11. OXALIPLATIN (MANUFACTURER UNKNOWN) [Suspect]
     Active Substance: OXALIPLATIN
     Dosage: UNKNOWN
     Route: 042
     Dates: start: 20160509, end: 20160815
  12. OXALIPLATIN (MANUFACTURER UNKNOWN) [Suspect]
     Active Substance: OXALIPLATIN
     Dosage: UNKNOWN
     Route: 042
     Dates: start: 20151228
  13. 5-FLUOROURACIL [Suspect]
     Active Substance: FLUOROURACIL
     Route: 040
     Dates: start: 20151228, end: 20160511
  14. DEXAMETHASON [Concomitant]
     Active Substance: DEXAMETHASONE
     Indication: NAUSEA
     Dosage: 8 MG, UNK (BEFORE CHEMOTHERAPY)
     Route: 042
  15. OXALIPLATIN (MANUFACTURER UNKNOWN) [Suspect]
     Active Substance: OXALIPLATIN
     Indication: COLORECTAL CANCER METASTATIC
     Dosage: UNKNOWN
     Route: 042
     Dates: start: 20160509, end: 20160815
  16. PANTOPRAZOL [Concomitant]
     Active Substance: PANTOPRAZOLE SODIUM
     Indication: PRODUCT USED FOR UNKNOWN INDICATION
     Route: 048
     Dates: start: 20160619
  17. FOLINIC ACID [Suspect]
     Active Substance: LEUCOVORIN
     Indication: COLORECTAL CANCER
     Dosage: 1 DF, Q2W (362-364 MG)
     Route: 042
     Dates: start: 20151228, end: 20161107
  18. ONDANSETRON [Concomitant]
     Active Substance: ONDANSETRON
     Indication: NAUSEA
     Dosage: 8 MG, QD
     Route: 042
     Dates: start: 20151228
  19. PANTOPRAZOL [Concomitant]
     Active Substance: PANTOPRAZOLE SODIUM
     Route: 065
  20. BISOPROLOL [Concomitant]
     Active Substance: BISOPROLOL
     Indication: HYPERTENSION
     Dosage: 5 MG, QD
     Route: 048
  21. OXALIPLATIN (MANUFACTURER UNKNOWN) [Suspect]
     Active Substance: OXALIPLATIN
     Dosage: UNKNOWN
     Route: 042
     Dates: start: 20160815
  22. AVASTIN [Suspect]
     Active Substance: BEVACIZUMAB
     Route: 042
     Dates: start: 20161024
  23. OXALIPLATIN (MANUFACTURER UNKNOWN) [Suspect]
     Active Substance: OXALIPLATIN
     Dosage: UNKNOWN
     Route: 042
     Dates: start: 20151228, end: 20160509

REACTIONS (2)
  - Liver abscess [Recovered/Resolved]
  - Perihepatic abscess [Recovered/Resolved]

NARRATIVE: CASE EVENT DATE: 20160622
